FAERS Safety Report 5136361-8 (Version None)
Quarter: 2006Q4

REPORT INFORMATION
  Report Type: 
  Country: None (occurrence: None)
  Receive Date: 20061027
  Receipt Date: 20060929
  Transmission Date: 20070319
  Serious: Yes (Death, Other)
  Sender: FDA-Public Use
  Company Number: US-PURDUE-USA_2006_0025299

PATIENT
  Age: 16 Year
  Sex: Female

DRUGS (3)
  1. OXYCODONE HCL [Suspect]
     Indication: DRUG ABUSER
     Dosage: UNK UNK, UNK
  2. METHADONE HCL [Suspect]
     Indication: DRUG ABUSER
  3. VALIUM [Suspect]
     Indication: DRUG ABUSER

REACTIONS (9)
  - ACCIDENTAL DEATH [None]
  - CONTUSION [None]
  - EXCORIATION [None]
  - HAEMOTHORAX [None]
  - LACERATION [None]
  - MULTIPLE FRACTURES [None]
  - POLYTRAUMATISM [None]
  - ROAD TRAFFIC ACCIDENT [None]
  - TOXICOLOGIC TEST ABNORMAL [None]
